FAERS Safety Report 20655603 (Version 1)
Quarter: 2022Q1

REPORT INFORMATION
  Report Type: Other
  Country: DE (occurrence: None)
  Receive Date: 20220330
  Receipt Date: 20220330
  Transmission Date: 20220424
  Serious: Yes (Other)
  Sender: FDA-Public Use
  Company Number: DE-ROCHE-2778911

PATIENT
  Age: 26 Year
  Sex: Female

DRUGS (3)
  1. OCREVUS [Suspect]
     Active Substance: OCRELIZUMAB
     Indication: Relapsing-remitting multiple sclerosis
     Route: 042
     Dates: start: 20181215
  2. MIRTAZAPINE [Concomitant]
     Active Substance: MIRTAZAPINE
  3. DOMINAL (GERMANY) [Concomitant]
     Dosage: IN THE EVENING

REACTIONS (9)
  - Multiple sclerosis [Recovered/Resolved]
  - Therapeutic product effect decreased [Unknown]
  - Hidradenitis [Unknown]
  - Pyrexia [Recovered/Resolved]
  - Cough [Not Recovered/Not Resolved]
  - Vomiting [Recovered/Resolved]
  - Psoriasis [Not Recovered/Not Resolved]
  - COVID-19 [Not Recovered/Not Resolved]
  - Hidradenitis [Not Recovered/Not Resolved]

NARRATIVE: CASE EVENT DATE: 20190601
